FAERS Safety Report 24352256 (Version 1)
Quarter: 2024Q3

REPORT INFORMATION
  Report Type: Report from Study
  Country: EG (occurrence: EG)
  Receive Date: 20240923
  Receipt Date: 20240923
  Transmission Date: 20241017
  Serious: No
  Sender: ROCHE
  Company Number: EG-ROCHE-3197348

PATIENT
  Age: 47 Year
  Sex: Female

DRUGS (2)
  1. HERCEPTIN [Suspect]
     Active Substance: TRASTUZUMAB
     Indication: Breast cancer metastatic
     Dosage: REASON FOR DOSE MODIFICATION/DISCONTINUATION: DISEASE PROGRESSION, NO FURTHER ANTICANCER TREATMENT
     Route: 041
     Dates: start: 20201209, end: 20210922
  2. TAXOL [Suspect]
     Active Substance: PACLITAXEL
     Indication: Breast cancer metastatic
     Dosage: NUMBER OF CYCLES PER REGIMEN: 8?PLANNED NUMBER OF CYCLES COMPLETED
     Route: 042
     Dates: start: 20201209, end: 20210526

REACTIONS (2)
  - Vision blurred [Unknown]
  - Vomiting [Unknown]

NARRATIVE: CASE EVENT DATE: 20211110
